FAERS Safety Report 12505964 (Version 2)
Quarter: 2018Q1

REPORT INFORMATION
  Report Type: Spontaneous
  Country: US (occurrence: US)
  Receive Date: 20160628
  Receipt Date: 20180316
  Transmission Date: 20180508
  Serious: Yes (Hospitalization, Disabling)
  Sender: FDA-Public Use
  Company Number: US-ENDO PHARMACEUTICALS INC.-2016-001156

PATIENT
  Age: 66 Year
  Sex: Male
  Weight: 115.65 kg

DRUGS (4)
  1. DELATESTRYL [Suspect]
     Active Substance: TESTOSTERONE ENANTHATE
     Dosage: UNK UNKNOWN, EVERY 3 MONTHS
     Route: 030
     Dates: start: 2010, end: 2011
  2. TESTOPEL [Suspect]
     Active Substance: TESTOSTERONE
     Indication: ANDROGEN REPLACEMENT THERAPY
     Dosage: UNK UNKNOWN, EVERY 3 MONTHS
     Route: 058
     Dates: start: 201205, end: 201403
  3. DELATESTRYL [Suspect]
     Active Substance: TESTOSTERONE ENANTHATE
     Indication: ANDROGEN REPLACEMENT THERAPY
     Dosage: UNK UNKNOWN, UNKNOWN
     Route: 030
     Dates: start: 2010, end: 2012
  4. DELATESTRYL [Suspect]
     Active Substance: TESTOSTERONE ENANTHATE
     Dosage: UNK UNKNOWN, EVERY 3 MONTHS
     Route: 030
     Dates: start: 2012, end: 2012

REACTIONS (2)
  - Blindness [Not Recovered/Not Resolved]
  - Cerebrovascular accident [Not Recovered/Not Resolved]

NARRATIVE: CASE EVENT DATE: 20140305
